FAERS Safety Report 5840876-4 (Version None)
Quarter: 2008Q3

REPORT INFORMATION
  Report Type: 
  Country: None (occurrence: None)
  Receive Date: 20080811
  Receipt Date: 20080507
  Transmission Date: 20090109
  Serious: No
  Sender: FDA-Public Use
  Company Number: US-BOEHRINGER INGELHEIM GMBH, GERMANY-2008-BP-01575BP

PATIENT
  Sex: Male
  Weight: 93 kg

DRUGS (11)
  1. MIRAPEX [Suspect]
     Indication: RESTLESS LEGS SYNDROME
     Dosage: 0.125 MG ONCE DAILY
     Dates: start: 20021017, end: 20021120
  2. MIRAPEX [Suspect]
     Dosage: FR. 0.125 MG ONCE DAILY UP TO 0.125 MG -2 TABS DAILY
     Dates: start: 20030506, end: 20031001
  3. MIRAPEX [Suspect]
     Dosage: FR. 0.25 MG 3 TABS DAILY UP TO 3 MG DAILY
     Dates: start: 20031117, end: 20070901
  4. FERROUS SULFATE TAB [Concomitant]
  5. CLINDAMYCIN HCL [Concomitant]
  6. RANITIDINE [Concomitant]
  7. CLONAZEPAM [Concomitant]
  8. PLAVIX [Concomitant]
  9. NABUMETONE [Concomitant]
  10. CYCLOBENZAPRINE HCL [Concomitant]
  11. IBUPROFEN [Concomitant]

REACTIONS (8)
  - BINGE EATING [None]
  - COMPULSIVE SHOPPING [None]
  - DEPRESSION [None]
  - EMOTIONAL DISTRESS [None]
  - OBSESSIVE-COMPULSIVE DISORDER [None]
  - PATHOLOGICAL GAMBLING [None]
  - SUICIDAL IDEATION [None]
  - WEIGHT INCREASED [None]
